FAERS Safety Report 10215248 (Version 2)
Quarter: 2014Q2

REPORT INFORMATION
  Report Type: Report from Study
  Country: JP (occurrence: JP)
  Receive Date: 20140603
  Receipt Date: 20140603
  Transmission Date: 20141212
  Serious: Yes (Other)
  Sender: FDA-Public Use
  Company Number: PHHY2013JP152119

PATIENT
  Age: 81 Year
  Sex: Female

DRUGS (3)
  1. EXELON [Suspect]
     Indication: DEMENTIA ALZHEIMER^S TYPE
     Dosage: 4.5 MG, DAILY
     Route: 062
     Dates: start: 20120919, end: 20121017
  2. EXELON [Suspect]
     Dosage: 9 MG, UNK
     Route: 062
     Dates: start: 20121018, end: 20121114
  3. EXELON [Suspect]
     Dosage: 13.5 MG, DAILY
     Route: 062
     Dates: start: 20121115, end: 20121212

REACTIONS (1)
  - Application site pruritus [Recovered/Resolved]
